FAERS Safety Report 12211803 (Version 1)
Quarter: 2016Q1

REPORT INFORMATION
  Report Type: Spontaneous
  Country: US (occurrence: US)
  Receive Date: 20160325
  Receipt Date: 20160325
  Transmission Date: 20160526
  Serious: Yes (Other)
  Sender: FDA-Public Use
  Company Number: US-BAYER-2016-053316

PATIENT
  Age: 60 Year
  Sex: Female
  Weight: 70.29 kg

DRUGS (4)
  1. XANAX [Concomitant]
     Active Substance: ALPRAZOLAM
  2. VITAMIN D [COLECALCIFEROL] [Concomitant]
  3. BAYER LOW DOSE [Concomitant]
     Active Substance: ASPIRIN
  4. DR. SCHOLLS CALLUS REMOVERS [Suspect]
     Active Substance: SALICYLIC ACID
     Indication: PALMOPLANTAR KERATODERMA
     Dosage: 1 DF, UNK
     Route: 061
     Dates: end: 2015

REACTIONS (3)
  - Localised infection [None]
  - Application site inflammation [None]
  - Product use issue [None]

NARRATIVE: CASE EVENT DATE: 2015
